FAERS Safety Report 8130539-7 (Version None)
Quarter: 2012Q1

REPORT INFORMATION
  Report Type: 
  Country: None (occurrence: None)
  Receive Date: 20120210
  Receipt Date: 20120201
  Transmission Date: 20120608
  Serious: Yes (Other)
  Sender: FDA-Public Use
  Company Number: US-ASTRAZENECA-2012SE07516

PATIENT
  Age: 43 Year
  Sex: Male
  Weight: 102.1 kg

DRUGS (3)
  1. NEXIUM [Suspect]
     Indication: DYSPEPSIA
     Route: 048
  2. NEXIUM [Suspect]
     Indication: HIATUS HERNIA
     Route: 048
  3. PERCOCET [Concomitant]
     Indication: ROAD TRAFFIC ACCIDENT

REACTIONS (3)
  - ROAD TRAFFIC ACCIDENT [None]
  - OFF LABEL USE [None]
  - ANKLE FRACTURE [None]
